FAERS Safety Report 18671490 (Version 3)
Quarter: 2021Q2

REPORT INFORMATION
  Report Type: Spontaneous
  Country: US (occurrence: US)
  Receive Date: 20201228
  Receipt Date: 20210604
  Transmission Date: 20210717
  Serious: No
  Sender: FDA-Public Use
  Company Number: US-PFIZER INC-2020358039

PATIENT
  Age: 79 Year
  Sex: Female
  Weight: 82 kg

DRUGS (3)
  1. LYRICA CR [Suspect]
     Active Substance: PREGABALIN
     Dosage: 82.5 MG, 1X/DAY
     Route: 048
     Dates: start: 20201217
  2. LYRICA CR [Suspect]
     Active Substance: PREGABALIN
     Dosage: 165 MG (CUTS IN HALF AND TAKES)
  3. LYRICA CR [Suspect]
     Active Substance: PREGABALIN
     Indication: NEURALGIA
     Dosage: 165 MG, 1X/DAY (1 CAPSULE BY MOUTH AT BEDTIME )
     Route: 048

REACTIONS (3)
  - Product dispensing error [Unknown]
  - Wrong technique in product usage process [Unknown]
  - Nervousness [Unknown]
